FAERS Safety Report 12131994 (Version 2)
Quarter: 2016Q2

REPORT INFORMATION
  Report Type: Report from Study
  Country: ES (occurrence: ES)
  Receive Date: 20160301
  Receipt Date: 20160419
  Transmission Date: 20160815
  Serious: Yes (Other)
  Sender: FDA-Public Use
  Company Number: ES-ABBVIE-16P-144-1568773-00

PATIENT
  Age: 59 Year
  Sex: Male

DRUGS (3)
  1. DUODOPA [Suspect]
     Active Substance: CARBIDOPA\LEVODOPA
     Dosage: AM DOSE 9ML, CONT. DOSE:3.3 ML/H, EXTRA DOSE:2.5
     Route: 050
     Dates: start: 20150525
  2. DUODOPA [Suspect]
     Active Substance: CARBIDOPA\LEVODOPA
     Indication: PARKINSON^S DISEASE
     Dosage: CONTINUOUS DOSE: 3.7ML/H
     Route: 050
     Dates: start: 20150527, end: 201602
  3. DUODOPA [Suspect]
     Active Substance: CARBIDOPA\LEVODOPA
     Dosage: CONTINUOUS DOSE:3.5 ML/H
     Route: 050
     Dates: start: 201602

REACTIONS (8)
  - Decreased appetite [Not Recovered/Not Resolved]
  - Gambling disorder [Not Recovered/Not Resolved]
  - Dyskinesia [Unknown]
  - Negativism [Unknown]
  - Depression [Unknown]
  - Neoplasm malignant [Unknown]
  - Weight decreased [Not Recovered/Not Resolved]
  - Anxiety [Unknown]

NARRATIVE: CASE EVENT DATE: 201601
